FAERS Safety Report 6554158-9 (Version None)
Quarter: 2010Q1

REPORT INFORMATION
  Report Type: 
  Country: None (occurrence: None)
  Receive Date: 20100125
  Receipt Date: 20100125
  Transmission Date: 20100710
  Serious: Yes (Other)
  Sender: FDA-Public Use
  Company Number: None

PATIENT
  Age: 69 Year
  Sex: Male
  Weight: 90.7194 kg

DRUGS (1)
  1. TYLENOL (CAPLET) [Suspect]
     Indication: PROCEDURAL PAIN
     Dosage: 2 GELTABS PER DAY PO
     Route: 048
     Dates: start: 20091220, end: 20100119

REACTIONS (3)
  - ABDOMINAL PAIN UPPER [None]
  - MALAISE [None]
  - PRODUCT QUALITY ISSUE [None]
